FAERS Safety Report 14873807 (Version 3)
Quarter: 2018Q2

REPORT INFORMATION
  Report Type: Spontaneous
  Country: BE (occurrence: BE)
  Receive Date: 20180510
  Receipt Date: 20180629
  Transmission Date: 20180711
  Serious: Yes (Hospitalization, Other)
  Sender: FDA-Public Use
  Company Number: BE-MYLANLABS-2018M1025597

PATIENT
  Age: 72 Year
  Sex: Male

DRUGS (1)
  1. OLMESARTAN MEDOXOMIL. [Suspect]
     Active Substance: OLMESARTAN MEDOXOMIL
     Indication: HYPERTENSION
     Dosage: 40 MG, QD
     Route: 048

REACTIONS (11)
  - Coeliac disease [Recovered/Resolved]
  - Weight decreased [Recovering/Resolving]
  - Dizziness [Unknown]
  - Gastrointestinal disorder [Recovering/Resolving]
  - Hypotension [Unknown]
  - Dehydration [Unknown]
  - Diarrhoea [Recovered/Resolved]
  - Renal impairment [Unknown]
  - Orthostatic hypotension [Unknown]
  - Malabsorption [Recovered/Resolved]
  - Normochromic normocytic anaemia [Unknown]
